FAERS Safety Report 8995984 (Version 1)
Quarter: 2013Q1

REPORT INFORMATION
  Report Type: Spontaneous
  Country: US (occurrence: US)
  Receive Date: 20130103
  Receipt Date: 20130103
  Transmission Date: 20140127
  Serious: No
  Sender: FDA-Public Use
  Company Number: US-ABBOTT-12P-163-0938430-00

PATIENT
  Sex: Female
  Weight: 64.92 kg

DRUGS (2)
  1. SYNTHROID [Suspect]
     Indication: HYPOTHYROIDISM
     Dates: start: 2006
  2. LIOTHYRONINE [Concomitant]
     Indication: HYPOTHYROIDISM
     Dates: start: 2010

REACTIONS (4)
  - Blood thyroid stimulating hormone increased [Unknown]
  - Drug ineffective [Unknown]
  - Asthenia [Unknown]
  - Sleep disorder [None]
